FAERS Safety Report 16968704 (Version 1)
Quarter: 2019Q4

REPORT INFORMATION
  Report Type: Spontaneous
  Country: US (occurrence: US)
  Receive Date: 20191029
  Receipt Date: 20191029
  Transmission Date: 20200122
  Serious: Yes (Hospitalization)
  Sender: FDA-Public Use
  Company Number: US-TEVA-2019-US-1128770

PATIENT
  Age: 36 Year
  Sex: Male

DRUGS (2)
  1. MOXIFLOXACIN. [Suspect]
     Active Substance: MOXIFLOXACIN
     Indication: PNEUMONIA
     Route: 065
  2. CLARITHROMYCIN. [Suspect]
     Active Substance: CLARITHROMYCIN
     Indication: PNEUMONIA
     Dosage: FOR 2 DAYS AND THEN READMINISTERED AGAIN AFTER SWITCH FROM MOXIFLOXACIN
     Route: 065

REACTIONS (2)
  - Drug reaction with eosinophilia and systemic symptoms [Not Recovered/Not Resolved]
  - Drug ineffective [Unknown]
